FAERS Safety Report 25314491 (Version 1)
Quarter: 2025Q2

REPORT INFORMATION
  Report Type: Spontaneous
  Country: DE (occurrence: DE)
  Receive Date: 20250514
  Receipt Date: 20250514
  Transmission Date: 20250717
  Serious: Yes (Congenital Anomaly)
  Sender: ABBVIE
  Company Number: DE-EMB-M202207681-1

PATIENT
  Sex: Male
  Weight: 4 kg

DRUGS (1)
  1. CITALOPRAM [Suspect]
     Active Substance: CITALOPRAM
     Indication: Maternal exposure timing unspecified
     Dosage: STRENGTH: 5 MILLIGRAM
     Route: 064

REACTIONS (2)
  - Renal fusion anomaly [Not Recovered/Not Resolved]
  - Foetal exposure during pregnancy [Unknown]
